FAERS Safety Report 18492046 (Version 1)
Quarter: 2020Q4

REPORT INFORMATION
  Report Type: Spontaneous
  Country: US (occurrence: US)
  Receive Date: 20201111
  Receipt Date: 20201111
  Transmission Date: 20210114
  Serious: No
  Sender: FDA-Public Use
  Company Number: US-ELI_LILLY_AND_COMPANY-US202011001276

PATIENT
  Age: 66 Year
  Sex: Female

DRUGS (2)
  1. TRULICITY [Suspect]
     Active Substance: DULAGLUTIDE
     Indication: BLOOD GLUCOSE
     Dosage: 1.5 MG, UNKNOWN
     Route: 065
     Dates: start: 20201025
  2. INVOKANA [Concomitant]
     Active Substance: CANAGLIFLOZIN
     Indication: DIABETES MELLITUS

REACTIONS (2)
  - Accidental underdose [Unknown]
  - Injection site pain [Unknown]

NARRATIVE: CASE EVENT DATE: 20201025
